FAERS Safety Report 5659513-7 (Version None)
Quarter: 2008Q1

REPORT INFORMATION
  Report Type: 
  Country: None (occurrence: None)
  Receive Date: 20080311
  Receipt Date: 20080227
  Transmission Date: 20080703
  Serious: Yes (Hospitalization)
  Sender: FDA-Public Use
  Company Number: GB-SANOFI-SYNTHELABO-A01200802322

PATIENT
  Age: 39 Year
  Sex: Male

DRUGS (2)
  1. PALUDRINE [Suspect]
     Indication: MALARIA PROPHYLAXIS
     Dosage: 200 MG
     Route: 065
  2. AVLOCLORE [Suspect]
     Indication: MALARIA PROPHYLAXIS
     Route: 065

REACTIONS (7)
  - ANAEMIA MEGALOBLASTIC [None]
  - EPISTAXIS [None]
  - GINGIVAL BLEEDING [None]
  - LETHARGY [None]
  - MUCOSAL INFLAMMATION [None]
  - PANCYTOPENIA [None]
  - URTICARIA [None]
